FAERS Safety Report 14690365 (Version 2)
Quarter: 2018Q2

REPORT INFORMATION
  Report Type: Spontaneous
  Country: US (occurrence: US)
  Receive Date: 20180328
  Receipt Date: 20180619
  Transmission Date: 20180711
  Serious: Yes (Hospitalization, Other)
  Sender: FDA-Public Use
  Company Number: US-009507513-1803USA011273

PATIENT
  Sex: Female
  Weight: 68.03 kg

DRUGS (4)
  1. NUVARING [Suspect]
     Active Substance: ETHINYL ESTRADIOL\ETONOGESTREL
     Indication: CONTRACEPTION
     Dosage: UNK
     Route: 067
     Dates: start: 20120109, end: 201301
  2. NUVARING [Suspect]
     Active Substance: ETHINYL ESTRADIOL\ETONOGESTREL
     Dosage: 0.12-0.015 MG/24HR L
     Route: 067
     Dates: start: 20140715, end: 20150415
  3. EXCEDRIN (ACETAMINOPHEN (+) CAFFEINE) [Concomitant]
     Indication: MIGRAINE
  4. VITAMINS (UNSPECIFIED) [Concomitant]
     Active Substance: VITAMINS
     Indication: PRODUCT USED FOR UNKNOWN INDICATION
     Route: 048

REACTIONS (8)
  - Caesarean section [Recovered/Resolved]
  - Maternal exposure before pregnancy [Recovered/Resolved]
  - Pain in extremity [Unknown]
  - Viral upper respiratory tract infection [Unknown]
  - Migraine [Unknown]
  - Breast feeding [Unknown]
  - Pulmonary embolism [Unknown]
  - Swelling [Unknown]

NARRATIVE: CASE EVENT DATE: 20140524
